FAERS Safety Report 8468787 (Version 11)
Quarter: 2013Q4

REPORT INFORMATION
  Report Type: Spontaneous
  Country: US (occurrence: US)
  Receive Date: 20120321
  Receipt Date: 20131203
  Transmission Date: 20140711
  Serious: Yes (Hospitalization, Other)
  Sender: FDA-Public Use
  Company Number: US-ASTRAZENECA-2011SE32258

PATIENT
  Age: 55 Year
  Sex: Female

DRUGS (51)
  1. NEXIUM [Suspect]
     Indication: GASTROOESOPHAGEAL REFLUX DISEASE
     Route: 048
     Dates: start: 1998, end: 2013
  2. NEXIUM [Suspect]
     Indication: DYSPEPSIA
     Route: 048
     Dates: start: 1998, end: 2013
  3. NEXIUM [Suspect]
     Indication: ABDOMINAL DISCOMFORT
     Route: 048
     Dates: start: 1998, end: 2013
  4. NEXIUM [Suspect]
     Indication: GASTROOESOPHAGEAL REFLUX DISEASE
     Dosage: 40 MG ONE CAPSULE IN THE MORNING 1 HOUR BEFORE BREAKFAST
     Route: 048
     Dates: start: 2001, end: 2012
  5. NEXIUM [Suspect]
     Indication: DYSPEPSIA
     Dosage: 40 MG ONE CAPSULE IN THE MORNING 1 HOUR BEFORE BREAKFAST
     Route: 048
     Dates: start: 2001, end: 2012
  6. NEXIUM [Suspect]
     Indication: ABDOMINAL DISCOMFORT
     Dosage: 40 MG ONE CAPSULE IN THE MORNING 1 HOUR BEFORE BREAKFAST
     Route: 048
     Dates: start: 2001, end: 2012
  7. NEXIUM [Suspect]
     Indication: GASTROOESOPHAGEAL REFLUX DISEASE
     Dosage: EVERYDAY
     Route: 048
     Dates: start: 2002, end: 2011
  8. NEXIUM [Suspect]
     Indication: DYSPEPSIA
     Dosage: EVERYDAY
     Route: 048
     Dates: start: 2002, end: 2011
  9. NEXIUM [Suspect]
     Indication: ABDOMINAL DISCOMFORT
     Dosage: EVERYDAY
     Route: 048
     Dates: start: 2002, end: 2011
  10. NEXIUM [Suspect]
     Indication: GASTROOESOPHAGEAL REFLUX DISEASE
     Route: 048
     Dates: start: 20020313
  11. NEXIUM [Suspect]
     Indication: DYSPEPSIA
     Route: 048
     Dates: start: 20020313
  12. NEXIUM [Suspect]
     Indication: ABDOMINAL DISCOMFORT
     Route: 048
     Dates: start: 20020313
  13. NEXIUM [Suspect]
     Indication: GASTROOESOPHAGEAL REFLUX DISEASE
     Route: 048
     Dates: start: 20080509
  14. NEXIUM [Suspect]
     Indication: DYSPEPSIA
     Route: 048
     Dates: start: 20080509
  15. NEXIUM [Suspect]
     Indication: ABDOMINAL DISCOMFORT
     Route: 048
     Dates: start: 20080509
  16. NEXIUM [Suspect]
     Indication: GASTROOESOPHAGEAL REFLUX DISEASE
     Dosage: 40 MG DAILY ONE HOUR BEFORE BREAKFAST
     Route: 048
     Dates: start: 20100409
  17. NEXIUM [Suspect]
     Indication: DYSPEPSIA
     Dosage: 40 MG DAILY ONE HOUR BEFORE BREAKFAST
     Route: 048
     Dates: start: 20100409
  18. NEXIUM [Suspect]
     Indication: ABDOMINAL DISCOMFORT
     Dosage: 40 MG DAILY ONE HOUR BEFORE BREAKFAST
     Route: 048
     Dates: start: 20100409
  19. NEXIUM [Suspect]
     Indication: GASTROOESOPHAGEAL REFLUX DISEASE
     Route: 048
     Dates: start: 20081010
  20. NEXIUM [Suspect]
     Indication: DYSPEPSIA
     Route: 048
     Dates: start: 20081010
  21. NEXIUM [Suspect]
     Indication: ABDOMINAL DISCOMFORT
     Route: 048
     Dates: start: 20081010
  22. PEPCID [Concomitant]
     Dosage: ONCE OR TWICE A MONTH
     Dates: start: 2007, end: 2012
  23. PEPTO BISMOL [Concomitant]
     Dosage: ONCE OR TWICE A MONTH
     Dates: start: 1992, end: 2012
  24. ALKA SELTZER/ASPIRIN [Concomitant]
     Route: 048
     Dates: start: 20100727
  25. ALKA SELTZER/ASPIRIN [Concomitant]
     Dosage: ONCE OR TWICE A MONTH
     Dates: start: 2002, end: 2012
  26. ESTRADIOL [Concomitant]
  27. KOPIDEX [Concomitant]
     Route: 048
  28. FLEXASE [Concomitant]
  29. TYLENOL [Concomitant]
     Dosage: BID
  30. PREVACID [Concomitant]
     Dates: start: 20020313
  31. PREVACID [Concomitant]
     Dates: start: 20080421, end: 20080509
  32. PREVACID [Concomitant]
     Route: 048
     Dates: start: 20010206
  33. LEXAPRO [Concomitant]
     Dosage: 10 MG QAM
  34. TRICOR [Concomitant]
  35. TRICOR [Concomitant]
     Route: 048
     Dates: start: 20010110
  36. PEG-3350 [Concomitant]
  37. MOTRIN IB [Concomitant]
     Dates: start: 20100713
  38. LIPITOR [Concomitant]
     Dates: start: 20020313
  39. HYDROCET/NORCO/VICODIN ES/LORTAB [Concomitant]
     Indication: PAIN
     Dates: start: 20001215
  40. HYDROCET/NORCO/VICODIN ES/LORTAB [Concomitant]
     Indication: PAIN
     Dates: start: 20020313
  41. HYDROCET/NORCO/VICODIN ES/LORTAB [Concomitant]
     Indication: PAIN
     Dosage: 10/500 MG ONE TO TWO PER ORAL EVERY FOUR HOURS PRN
     Dates: start: 20100727
  42. HYDROCET/NORCO/VICODIN ES/LORTAB [Concomitant]
     Indication: PAIN
     Dosage: 7.5 MG/ 750 MG TK 1 T PO Q 4 H PRN
     Route: 048
     Dates: start: 20020315
  43. PREMARIN [Concomitant]
     Route: 048
     Dates: start: 20001215
  44. PREMARIN [Concomitant]
     Route: 048
     Dates: start: 20040301
  45. ACETAMINOPHEN W/CODEINE [Concomitant]
     Dosage: TAKE ONE OR TWO TS PO Q 4 H PRN
     Route: 048
     Dates: start: 20010424
  46. METHYLPREDNISOLONE [Concomitant]
     Dosage: TAKE AS DIRECTED
     Dates: start: 20020712
  47. ALLEGRA-D [Concomitant]
     Dosage: TK 1 T PO Q 12 H
     Route: 048
     Dates: start: 20030315
  48. BIAXIN XL [Concomitant]
     Dosage: TK 2 TS PO QD
     Route: 048
     Dates: start: 20030315
  49. MACROBID [Concomitant]
     Route: 048
     Dates: start: 20031106
  50. CLONAZEPAM [Concomitant]
     Route: 048
     Dates: start: 20031117
  51. OMEPRAZOLE [Concomitant]
     Route: 048
     Dates: start: 20071212

REACTIONS (11)
  - Lower limb fracture [Unknown]
  - Tibia fracture [Unknown]
  - Joint injury [Unknown]
  - Fall [Unknown]
  - Meniscus injury [Unknown]
  - Femur fracture [Unknown]
  - Patellofemoral pain syndrome [Unknown]
  - Joint dislocation [Unknown]
  - Nasopharyngitis [Unknown]
  - Osteoporosis [Unknown]
  - Foot fracture [Unknown]
